FAERS Safety Report 6418392-0 (Version None)
Quarter: 2009Q4

REPORT INFORMATION
  Report Type: 
  Country: None (occurrence: None)
  Receive Date: 20091026
  Receipt Date: 20091013
  Transmission Date: 20100525
  Serious: Yes (Death, Hospitalization)
  Sender: FDA-Public Use
  Company Number: ADR37342009

PATIENT
  Age: 78 Year
  Sex: Female

DRUGS (10)
  1. SIMVASTATIN [Suspect]
     Indication: CARDIOVASCULAR EVENT PROPHYLAXIS
     Dosage: 10 MG ORAL USE
     Route: 048
     Dates: end: 20070912
  2. AEROBEC [Concomitant]
  3. AIROMIR [Concomitant]
  4. AMITRIPTYLINE [Concomitant]
  5. ASPIRIN [Concomitant]
  6. BENDROFLUAZIDE [Concomitant]
  7. GLIMEPIRIDE [Concomitant]
  8. LEVOTHYROXINE SODIUM [Concomitant]
  9. METFORMIN HCL [Concomitant]
  10. LEVOTHYROXINE SODIUM [Concomitant]

REACTIONS (6)
  - ARTERIOSCLEROSIS [None]
  - BRONCHOPNEUMONIA [None]
  - CARDIAC FAILURE [None]
  - HAEMOPTYSIS [None]
  - LUNG DISORDER [None]
  - RENAL ARTERIOSCLEROSIS [None]
